FAERS Safety Report 6202202-0 (Version None)
Quarter: 2009Q2

REPORT INFORMATION
  Report Type: 
  Country: None (occurrence: None)
  Receive Date: 20090518
  Receipt Date: 20090313
  Transmission Date: 20091009
  Serious: No
  Sender: FDA-Public Use
  Company Number: WAES 0903USA03054

PATIENT
  Sex: Male

DRUGS (2)
  1. JANUVIA [Suspect]
     Dosage: PO
     Route: 048
  2. NOVOLOG [Suspect]

REACTIONS (3)
  - DRUG INEFFECTIVE [None]
  - LIVER DISORDER [None]
  - RASH [None]
